FAERS Safety Report 22259791 (Version 1)
Quarter: 2023Q2

REPORT INFORMATION
  Report Type: Spontaneous
  Country: AU (occurrence: AU)
  Receive Date: 20230427
  Receipt Date: 20230427
  Transmission Date: 20230722
  Serious: Yes (Hospitalization, Other)
  Sender: FDA-Public Use
  Company Number: AU-ABBVIE-4743043

PATIENT
  Sex: Female
  Weight: 75 kg

DRUGS (7)
  1. ADALIMUMAB [Suspect]
     Active Substance: ADALIMUMAB
     Indication: Hidradenitis
     Route: 058
  2. UPADACITINIB [Suspect]
     Active Substance: UPADACITINIB
     Indication: Product used for unknown indication
     Route: 048
  3. INFLIXIMAB [Suspect]
     Active Substance: INFLIXIMAB
     Indication: Hidradenitis
  4. PREDNISONE [Suspect]
     Active Substance: PREDNISONE
     Indication: Hidradenitis
  5. AZATHIOPRINE [Suspect]
     Active Substance: AZATHIOPRINE
     Indication: Vulval disorder
  6. COSENTYX [Suspect]
     Active Substance: SECUKINUMAB
     Indication: Hidradenitis
  7. Hyrimoz Senso-Ready Pen [Concomitant]
     Indication: Product used for unknown indication

REACTIONS (10)
  - Hidradenitis [Unknown]
  - Surgery [Unknown]
  - Drug ineffective [Unknown]
  - Unevaluable event [Unknown]
  - Clostridium difficile colitis [Unknown]
  - Product use in unapproved indication [Unknown]
  - Vulval disorder [Unknown]
  - Condition aggravated [Unknown]
  - Impaired work ability [Unknown]
  - Impaired quality of life [Unknown]
